FAERS Safety Report 17824377 (Version 1)
Quarter: 2020Q2

REPORT INFORMATION
  Report Type: Spontaneous
  Country: US (occurrence: US)
  Receive Date: 20200526
  Receipt Date: 20200526
  Transmission Date: 20200714
  Serious: No
  Sender: FDA-Public Use
  Company Number: None

PATIENT
  Age: 17 Year
  Sex: Male
  Weight: 76.5 kg

DRUGS (1)
  1. ONCE-A-DAY LAMOTRIGINE EXTENDED-RELEASE TABLETS, USP [Suspect]
     Active Substance: LAMOTRIGINE
     Indication: PERSONALITY DISORDER
     Dosage: ?          QUANTITY:1 TABLET(S);?
     Route: 048
     Dates: start: 20200514, end: 20200526

REACTIONS (8)
  - Nausea [None]
  - Product substitution issue [None]
  - Anger [None]
  - Abnormal dreams [None]
  - Therapeutic product effect decreased [None]
  - Dizziness [None]
  - Hyperhidrosis [None]
  - Sleep disorder [None]

NARRATIVE: CASE EVENT DATE: 20200526
